FAERS Safety Report 15246073 (Version 2)
Quarter: 2018Q3

REPORT INFORMATION
  Report Type: Spontaneous
  Country: JP (occurrence: JP)
  Receive Date: 20180806
  Receipt Date: 20180820
  Transmission Date: 20181010
  Serious: Yes (Disabling)
  Sender: FDA-Public Use
  Company Number: JP-BAYER-2018-140479

PATIENT
  Age: 78 Year
  Sex: Male

DRUGS (2)
  1. BAYASPIRIN 100 MG [Suspect]
     Active Substance: ASPIRIN
     Indication: VASCULAR STENOSIS
     Dosage: 100 MG, QD
     Route: 048
     Dates: start: 20170815
  2. CLARITH [Concomitant]
     Active Substance: CLARITHROMYCIN
     Indication: SINUSITIS
     Dosage: UNK

REACTIONS (5)
  - Product use in unapproved indication [None]
  - Off label use [None]
  - Deafness [Not Recovered/Not Resolved]
  - Cerebrovascular disorder [None]
  - Inner ear disorder [None]

NARRATIVE: CASE EVENT DATE: 20180515
